FAERS Safety Report 6463152-8 (Version None)
Quarter: 2009Q4

REPORT INFORMATION
  Report Type: 
  Country: None (occurrence: None)
  Receive Date: 20091130
  Receipt Date: 20091125
  Transmission Date: 20100525
  Serious: Yes (Death, Hospitalization, Other)
  Sender: FDA-Public Use
  Company Number: GR-SANOFI-AVENTIS-2009SA004563

PATIENT
  Sex: Male
  Weight: 76 kg

DRUGS (10)
  1. OXALIPLATIN [Suspect]
     Indication: COLORECTAL CANCER
     Route: 041
     Dates: start: 20090602, end: 20090602
  2. OXALIPLATIN [Suspect]
     Route: 041
     Dates: start: 20081216, end: 20081216
  3. ALL OTHER THERAPEUTIC PRODUCTS [Suspect]
     Indication: COLORECTAL CANCER
     Route: 042
     Dates: start: 20090602, end: 20090602
  4. ALL OTHER THERAPEUTIC PRODUCTS [Suspect]
     Route: 042
     Dates: start: 20081216, end: 20081216
  5. CALCIUM LEVOFOLINATE [Suspect]
     Indication: COLORECTAL CANCER
     Route: 041
     Dates: start: 20090602, end: 20090602
  6. CALCIUM LEVOFOLINATE [Suspect]
     Route: 041
     Dates: start: 20081216, end: 20081216
  7. FLUOROURACIL [Suspect]
     Indication: COLORECTAL CANCER
     Route: 040
     Dates: start: 20081216, end: 20081216
  8. FLUOROURACIL [Suspect]
     Route: 041
     Dates: start: 20081216, end: 20081216
  9. FLUOROURACIL [Suspect]
     Route: 040
     Dates: start: 20090602, end: 20090602
  10. FLUOROURACIL [Suspect]
     Route: 041
     Dates: start: 20090602, end: 20090602

REACTIONS (2)
  - DYSPNOEA [None]
  - PULMONARY HAEMORRHAGE [None]
